FAERS Safety Report 5740158-5 (Version None)
Quarter: 2008Q2

REPORT INFORMATION
  Report Type: 
  Country: None (occurrence: None)
  Receive Date: 20080516
  Receipt Date: 20080505
  Transmission Date: 20081010
  Serious: Yes (Hospitalization, Other)
  Sender: FDA-Public Use
  Company Number: US-ROCHE-200432

PATIENT
  Age: 66 Year
  Sex: Male

DRUGS (6)
  1. TICLID [Suspect]
     Indication: PROPHYLAXIS
     Route: 048
     Dates: start: 19981229, end: 19990105
  2. ASPIRIN [Concomitant]
     Route: 048
  3. ATENOLOL [Concomitant]
     Indication: CORONARY ARTERY DISEASE
     Route: 048
  4. ALLOPURINOL [Concomitant]
     Indication: GOUT
     Route: 048
  5. CARDURA [Concomitant]
     Indication: CORONARY ARTERY DISEASE
     Route: 048
  6. ACCUPRIL [Concomitant]
     Route: 048

REACTIONS (5)
  - ANAEMIA [None]
  - EPISTAXIS [None]
  - IDIOPATHIC THROMBOCYTOPENIC PURPURA [None]
  - MOUTH HAEMORRHAGE [None]
  - RECTAL HAEMORRHAGE [None]
